FAERS Safety Report 12597467 (Version 1)
Quarter: 2016Q3

REPORT INFORMATION
  Report Type: Spontaneous
  Country: US (occurrence: US)
  Receive Date: 20160726
  Receipt Date: 20160726
  Transmission Date: 20161109
  Serious: No
  Sender: FDA-Public Use
  Company Number: US-UNITED THERAPEUTICS-UNT-2015-016439

PATIENT
  Age: 83 Year
  Sex: Female
  Weight: 46.71 kg

DRUGS (4)
  1. LASIX [Suspect]
     Active Substance: FUROSEMIDE
     Indication: PRODUCT USED FOR UNKNOWN INDICATION
     Route: 065
  2. ADEMPAS [Concomitant]
     Active Substance: RIOCIGUAT
     Indication: PRODUCT USED FOR UNKNOWN INDICATION
     Route: 065
  3. TYVASO [Suspect]
     Active Substance: TREPROSTINIL
     Indication: PULMONARY HYPERTENSION
     Dosage: 18-54 MICROGRAMS, QID
     Dates: start: 20151215
  4. TYVASO [Suspect]
     Active Substance: TREPROSTINIL
     Dosage: UNK

REACTIONS (8)
  - Oedema [Unknown]
  - Adverse event [Unknown]
  - Ageusia [Unknown]
  - Decreased appetite [Unknown]
  - Dyspnoea [Unknown]
  - Oedema peripheral [Not Recovered/Not Resolved]
  - Rash [Unknown]
  - Muscle tightness [Unknown]

NARRATIVE: CASE EVENT DATE: 201512
